FAERS Safety Report 21213010 (Version 1)
Quarter: 2022Q3

REPORT INFORMATION
  Report Type: Spontaneous
  Country: US (occurrence: None)
  Receive Date: 20220815
  Receipt Date: 20220815
  Transmission Date: 20221026
  Serious: No
  Sender: FDA-Public Use
  Company Number: None

PATIENT
  Age: 74 Year
  Sex: Male
  Weight: 97.5 kg

DRUGS (2)
  1. RABIES VACCINE [Suspect]
     Active Substance: RABIES VACCINE
     Indication: Bite
     Dosage: OTHER FREQUENCY : X1;?
     Route: 030
     Dates: start: 20220731, end: 20220814
  2. RABIES VACCINE [Suspect]
     Active Substance: RABIES VACCINE
     Indication: Bite
     Route: 030
     Dates: start: 20220731, end: 20220814

REACTIONS (1)
  - Wrong product administered [None]

NARRATIVE: CASE EVENT DATE: 20220814
